FAERS Safety Report 9011998 (Version 1)
Quarter: 2013Q1

REPORT INFORMATION
  Report Type: Spontaneous
  Country: GR (occurrence: GR)
  Receive Date: 20130114
  Receipt Date: 20130114
  Transmission Date: 20140127
  Serious: Yes (Other)
  Sender: FDA-Public Use
  Company Number: GR-JNJFOC-20130105446

PATIENT
  Sex: 0

DRUGS (4)
  1. REMICADE [Suspect]
     Indication: IRIDOCYCLITIS
     Route: 042
  2. REMICADE [Suspect]
     Indication: JUVENILE IDIOPATHIC ARTHRITIS
     Route: 042
  3. METHOTREXATE [Suspect]
     Indication: IRIDOCYCLITIS
     Route: 065
  4. METHOTREXATE [Suspect]
     Indication: JUVENILE IDIOPATHIC ARTHRITIS
     Route: 065

REACTIONS (2)
  - Therapeutic response decreased [Unknown]
  - Adverse event [Unknown]
